FAERS Safety Report 9012792 (Version 1)
Quarter: 2013Q1

REPORT INFORMATION
  Report Type: Spontaneous
  Country: US (occurrence: US)
  Receive Date: 20130114
  Receipt Date: 20130114
  Transmission Date: 20140127
  Serious: Yes (Disabling, Other)
  Sender: FDA-Public Use
  Company Number: US-009507513-1301USA003329

PATIENT
  Age: 37 Year
  Sex: Female

DRUGS (7)
  1. MONTELUKAST SODIUM [Suspect]
     Indication: ASTHMA
     Route: 048
  2. XOLAIR [Suspect]
     Indication: PRODUCT USED FOR UNKNOWN INDICATION
     Dosage: 300 MG, 1/MONTH
     Route: 058
  3. IPRATROPIUM BROMIDE [Suspect]
  4. FLUTICASONE PROPIONATE (+) SALMETEROL XINAFOATE [Suspect]
  5. ALBUTEROL SULFATE [Concomitant]
  6. CITALOPRAM [Concomitant]
  7. ATROVENT [Concomitant]

REACTIONS (2)
  - Nervous system disorder [Unknown]
  - Transient ischaemic attack [Unknown]
